FAERS Safety Report 7425902-3 (Version None)
Quarter: 2011Q2

REPORT INFORMATION
  Report Type: 
  Country: None (occurrence: None)
  Receive Date: 20110420
  Receipt Date: 20110411
  Transmission Date: 20111010
  Serious: Yes (Other)
  Sender: FDA-Public Use
  Company Number: NL-TEVA-253590ISR

PATIENT
  Sex: Male

DRUGS (6)
  1. ABIRATERONE ACETATE- BLINDED (ABIRATERONE ACETATE) [Suspect]
     Dates: end: 20100826
  2. CLONIDINE [Concomitant]
     Indication: HOT FLUSH
     Dosage: .15 MILLIGRAM;
     Dates: start: 20100907, end: 20100707
  3. GOSERELIN [Concomitant]
     Indication: HORMONE THERAPY
     Dosage: .36 MILLIGRAM;
     Route: 058
     Dates: start: 20090609
  4. PREDNISOLONE [Suspect]
     Indication: PROSTATE CANCER METASTATIC
     Dosage: 10 MILLIGRAM;
     Route: 048
     Dates: start: 20100115, end: 20100826
  5. ABIRATERONE ACETATE- BLINDED (ABIRATERONE ACETATE) [Suspect]
     Indication: PROSTATE CANCER METASTATIC
     Route: 048
     Dates: start: 20100115, end: 20100421
  6. NADROPARIN CALCIUM [Concomitant]
     Dosage: .3 ML;
     Route: 058
     Dates: start: 20080401

REACTIONS (3)
  - ASPARTATE AMINOTRANSFERASE INCREASED [None]
  - HEPATITIS TOXIC [None]
  - ALANINE AMINOTRANSFERASE INCREASED [None]
